FAERS Safety Report 14474949 (Version 3)
Quarter: 2018Q3

REPORT INFORMATION
  Report Type: Spontaneous
  Country: US (occurrence: US)
  Receive Date: 20180201
  Receipt Date: 20180705
  Transmission Date: 20181010
  Serious: Yes (Other)
  Sender: FDA-Public Use
  Company Number: US-PFIZER INC-2018038456

PATIENT
  Sex: Female

DRUGS (7)
  1. ALPRAZOLAM. [Suspect]
     Active Substance: ALPRAZOLAM
     Indication: GENERALISED TONIC-CLONIC SEIZURE
  2. ALPRAZOLAM SANDOZ [Suspect]
     Active Substance: ALPRAZOLAM
     Dosage: UNK (TAKING 5 A DAY, OTHER TIMES SHE WAS TAKING 8 A DAY AND THEN SHE WAS BACK TO TWO A DAY)
  3. XANAX [Suspect]
     Active Substance: ALPRAZOLAM
     Indication: ANXIETY
     Dosage: 1 MG, 5 TIMES A DAY (3 PILLS DURING THE DAY AND 2 PILLS AT BED TIME)
  4. XANAX [Suspect]
     Active Substance: ALPRAZOLAM
     Indication: GENERALISED TONIC-CLONIC SEIZURE
     Dosage: 8 DF, UNK
  5. XANAX [Suspect]
     Active Substance: ALPRAZOLAM
     Dosage: 0.25 MG, UNK (0.25 MG DOSE ONCE IN A BLUE MOON)
  6. ELMIRON [Concomitant]
     Active Substance: PENTOSAN POLYSULFATE SODIUM
     Dosage: UNK
  7. ALPRAZOLAM. [Suspect]
     Active Substance: ALPRAZOLAM
     Indication: ANXIETY
     Dosage: 1 MG, UNK

REACTIONS (11)
  - Colon cancer [Recovered/Resolved]
  - Cerebrovascular accident [Unknown]
  - Drug ineffective [Unknown]
  - Confusional state [Unknown]
  - Head injury [Unknown]
  - Disorientation [Unknown]
  - Vomiting [Unknown]
  - Transient ischaemic attack [Unknown]
  - Seizure [Unknown]
  - Neurosis [Not Recovered/Not Resolved]
  - Insomnia [Unknown]
